FAERS Safety Report 5115400-4 (Version None)
Quarter: 2006Q3

REPORT INFORMATION
  Report Type: 
  Country: None (occurrence: None)
  Receive Date: 20060922
  Receipt Date: 20060912
  Transmission Date: 20061208
  Serious: Yes (Hospitalization)
  Sender: FDA-Public Use
  Company Number: 2006106632

PATIENT
  Age: 71 Year
  Sex: Male

DRUGS (18)
  1. SALAZOPYRIN (SULFASALAZINE) [Suspect]
     Indication: DRUG USE FOR UNKNOWN INDICATION
     Dosage: ORAL
     Route: 048
     Dates: start: 20040101, end: 20060720
  2. METRONIDAZOLE (MITRONIDAZOLE) [Concomitant]
  3. RANITIDINE [Concomitant]
  4. ALBYL-E (ACETYLSALICYLIC ACID, MAGNESIUM OXIDE) [Concomitant]
  5. FERRO-RETARD (FERROUS SULFATE) [Concomitant]
  6. MERONEM (MEROPENEM) [Concomitant]
  7. CEFUROXIME [Concomitant]
  8. ABBOTICIN (ERYTHROMYCIN STEARATE) [Concomitant]
  9. CIPROFLOXACIN [Concomitant]
  10. OMNIC (TAMSULOSIN HYDROCHLORIDE) [Concomitant]
  11. DIFLUCAN [Concomitant]
  12. DOXYCYCLINE HYDROCHLORIDE (DOXYCYCLINE HYDROCHLORIDE) [Concomitant]
  13. PENICILLINE (BENZYLPENICILLIN SODIUM) [Concomitant]
  14. NEXIUM [Concomitant]
  15. ADALAT [Concomitant]
  16. NEBCIN [Concomitant]
  17. ALL OTHER THERAPEUTIC PRODUCTS (ALL OTHER THERAPEUTIC PRODUCTS) [Concomitant]
  18. SIMVASTATIN [Concomitant]

REACTIONS (1)
  - PNEUMONIA [None]
